FAERS Safety Report 8592872 (Version 3)
Quarter: 2012Q4

REPORT INFORMATION
  Report Type: Report from Study
  Country: GB (occurrence: GB)
  Receive Date: 20120604
  Receipt Date: 20121127
  Transmission Date: 20130627
  Serious: Yes (Life-Threatening)
  Sender: FDA-Public Use
  Company Number: GB-AMGEN-GBRSP2012033663

PATIENT
  Age: 13 Year
  Sex: Male
  Weight: 65.1 kg

DRUGS (1)
  1. ETANERCEPT [Suspect]
     Indication: JUVENILE ARTHRITIS
     Dosage: 25 mg, UNK
     Route: 058
     Dates: start: 200609, end: 20120228

REACTIONS (2)
  - Suicide attempt [Recovering/Resolving]
  - Depression [Recovering/Resolving]
